FAERS Safety Report 19391778 (Version 2)
Quarter: 2021Q3

REPORT INFORMATION
  Report Type: Spontaneous
  Country: US (occurrence: US)
  Receive Date: 20210609
  Receipt Date: 20210902
  Transmission Date: 20211014
  Serious: Yes (Hospitalization, Congenital Anomaly, Other)
  Sender: FDA-Public Use
  Company Number: US-LUPIN PHARMACEUTICALS INC.-2021-08891

PATIENT
  Sex: Female

DRUGS (1)
  1. NADOLOL. [Suspect]
     Active Substance: NADOLOL
     Indication: VENTRICULAR TACHYCARDIA
     Dosage: 40 MILLIGRAM, QD
     Route: 064

REACTIONS (8)
  - Foetal exposure during pregnancy [Unknown]
  - Cardio-respiratory distress [Recovered/Resolved]
  - Hypoglycaemia neonatal [Recovered/Resolved]
  - Agitation [Unknown]
  - Small for dates baby [Unknown]
  - Foetal growth restriction [Unknown]
  - Premature baby [Unknown]
  - Neonatal hypoxia [Unknown]
